FAERS Safety Report 5075537-5 (Version None)
Quarter: 2006Q3

REPORT INFORMATION
  Report Type: 
  Country: None (occurrence: None)
  Receive Date: 20060804
  Receipt Date: 20060724
  Transmission Date: 20061208
  Serious: Yes (Hospitalization)
  Sender: FDA-Public Use
  Company Number: 2006093184

PATIENT
  Age: 77 Year
  Sex: Female

DRUGS (4)
  1. CELEBREX [Suspect]
     Indication: RHEUMATOID ARTHRITIS
     Dosage: 1 UNIT (FREQUENCY:  CYCLIC), ORAL
     Route: 048
     Dates: start: 20060101, end: 20060705
  2. SANDIMMUNE [Concomitant]
  3. OMEPRAZOLE [Concomitant]
  4. MEDROL ACETATE [Concomitant]

REACTIONS (1)
  - ACUTE MYOCARDIAL INFARCTION [None]
